FAERS Safety Report 5356243-6 (Version None)
Quarter: 2007Q2

REPORT INFORMATION
  Report Type: 
  Country: None (occurrence: None)
  Receive Date: 20070613
  Receipt Date: 20070601
  Transmission Date: 20071010
  Serious: Yes (Hospitalization, Disabling, Other)
  Sender: FDA-Public Use
  Company Number: JP-PFIZER INC-2007044093

PATIENT
  Sex: Female
  Weight: 41.8 kg

DRUGS (10)
  1. NORPACE [Suspect]
     Indication: ARRHYTHMIA
     Route: 048
     Dates: start: 20060315, end: 20070517
  2. NORPACE [Interacting]
     Indication: ATRIAL FIBRILLATION
  3. WARFARIN SODIUM [Interacting]
     Indication: THROMBOSIS PROPHYLAXIS
     Route: 048
  4. DIGOSIN [Interacting]
     Indication: CARDIAC FAILURE CHRONIC
     Route: 048
  5. ERYTHROMYCIN STEARATE [Interacting]
     Indication: BRONCHITIS CHRONIC
     Route: 048
  6. FOSFOMYCIN [Interacting]
     Indication: PNEUMONIA
     Route: 042
     Dates: start: 20070514, end: 20070516
  7. CEFAZOLIN SODIUM [Interacting]
     Indication: PNEUMONIA
     Route: 042
     Dates: start: 20070514, end: 20070516
  8. AZULENE [Concomitant]
     Indication: GASTRITIS
     Route: 048
  9. GLUTAMINE [Concomitant]
     Indication: GASTRITIS
     Route: 048
  10. CLEANAL [Concomitant]
     Indication: BRONCHITIS CHRONIC
     Route: 048

REACTIONS (4)
  - BRADYCARDIA [None]
  - DRUG INTERACTION [None]
  - HYPOGLYCAEMIA [None]
  - PNEUMONIA ASPIRATION [None]
